FAERS Safety Report 5663880-8 (Version None)
Quarter: 2008Q1

REPORT INFORMATION
  Report Type: 
  Country: None (occurrence: None)
  Receive Date: 20080311
  Receipt Date: 20080229
  Transmission Date: 20080703
  Serious: Yes (Other)
  Sender: FDA-Public Use
  Company Number: GXKR2008GB02198

PATIENT
  Sex: Female

DRUGS (6)
  1. HYPERICUM PERFORATUM            (HYPERICUM PERFORATUM) [Suspect]
  2. GABAPENTIN [Suspect]
     Indication: NEURALGIA
  3. MEPERIDINE HCL [Suspect]
     Indication: PAIN
     Dosage: 3 DOSES, INTRAVENOUS
     Route: 042
  4. TRAMADOL                               (TRAMADOL) UNKNOW [Suspect]
     Indication: PAIN
  5. ACETAMINOPHEN [Concomitant]
  6. CONTRACEPTIVES NOS             (NO INGREDIENTS/SUBSTANCES) [Concomitant]

REACTIONS (2)
  - DRUG INTERACTION [None]
  - SEROTONIN SYNDROME [None]
